FAERS Safety Report 9658096 (Version 1)
Quarter: 2013Q4

REPORT INFORMATION
  Report Type: Spontaneous
  Country: AU (occurrence: AU)
  Receive Date: 20131030
  Receipt Date: 20131030
  Transmission Date: 20140711
  Serious: Yes (Other)
  Sender: FDA-Public Use
  Company Number: AU-ABBVIE-13P-008-1162522-00

PATIENT
  Age: 60 Year
  Sex: Female

DRUGS (2)
  1. HUMIRA [Suspect]
     Indication: PRODUCT USED FOR UNKNOWN INDICATION
  2. CORTISONE [Suspect]
     Indication: TOXICITY TO VARIOUS AGENTS

REACTIONS (3)
  - Neuropathy peripheral [Unknown]
  - Toxicity to various agents [Unknown]
  - Weight increased [Unknown]
